FAERS Safety Report 4568333-6 (Version None)
Quarter: 2005Q1

REPORT INFORMATION
  Report Type: 
  Country: None (occurrence: None)
  Receive Date: 20050202
  Receipt Date: 20050128
  Transmission Date: 20050727
  Serious: Yes (Other)
  Sender: FDA-Public Use
  Company Number: GB-GLAXOSMITHKLINE-B0367976A

PATIENT

DRUGS (1)
  1. NYTOL [Suspect]
     Dates: start: 20050128

REACTIONS (1)
  - INTENTIONAL MISUSE [None]
